FAERS Safety Report 6812874-5 (Version None)
Quarter: 2010Q3

REPORT INFORMATION
  Report Type: 
  Country: None (occurrence: None)
  Receive Date: 20100701
  Receipt Date: 20100629
  Transmission Date: 20110219
  Serious: Yes (Hospitalization)
  Sender: FDA-Public Use
  Company Number: GXKR2010DE07150

PATIENT
  Age: 86 Year
  Sex: Female
  Weight: 70 kg

DRUGS (11)
  1. ASPIRIN [Suspect]
     Dosage: 1 DF, QD
     Route: 048
     Dates: end: 20070828
  2. METRONIDAZOLE [Concomitant]
  3. MEMANTINE HCL [Concomitant]
  4. GINGIUM [Concomitant]
  5. NOVALGIN                                /SWE/ [Concomitant]
  6. KLACID                                  /IRE/ [Concomitant]
  7. THYRONAJOD [Concomitant]
  8. KINZALMONO [Concomitant]
  9. NORVASC [Concomitant]
  10. MCP ^HEXAL^ [Concomitant]
  11. PANTOZOL [Concomitant]

REACTIONS (3)
  - GASTROINTESTINAL HAEMORRHAGE [None]
  - HAEMOGLOBIN DECREASED [None]
  - MELAENA [None]
